FAERS Safety Report 12298793 (Version 2)
Quarter: 2016Q2

REPORT INFORMATION
  Report Type: Spontaneous
  Country: PT (occurrence: PT)
  Receive Date: 20160425
  Receipt Date: 20160614
  Transmission Date: 20160815
  Serious: Yes (Other)
  Sender: FDA-Public Use
  Company Number: PT-ORION CORPORATION ORION PHARMA-ENTC2016-0203

PATIENT
  Sex: Male

DRUGS (6)
  1. LOSARTAN AND HYDROCHLOROTHIAZIDE [Concomitant]
     Active Substance: HYDROCHLOROTHIAZIDE\LOSARTAN POTASSIUM
     Route: 065
  2. EXELON [Suspect]
     Active Substance: RIVASTIGMINE TARTRATE
     Route: 030
  3. RIVOTRIL [Concomitant]
     Active Substance: CLONAZEPAM
     Route: 065
  4. XARELTO [Concomitant]
     Active Substance: RIVAROXABAN
     Dosage: 15 OT
     Route: 065
  5. MEMANTINE. [Concomitant]
     Active Substance: MEMANTINE
     Route: 065
  6. STALEVO [Suspect]
     Active Substance: CARBIDOPA\ENTACAPONE\LEVODOPA
     Indication: VASCULAR DEMENTIA
     Dosage: STRENGTH: 200/50/200 MG
     Route: 048

REACTIONS (10)
  - Product physical issue [Unknown]
  - Wrong technique in product usage process [Unknown]
  - Skin discolouration [Unknown]
  - Product use issue [Unknown]
  - Product taste abnormal [Unknown]
  - Product quality issue [Unknown]
  - Chromaturia [Unknown]
  - Drug intolerance [Unknown]
  - Product difficult to swallow [Unknown]
  - Product size issue [Unknown]
